FAERS Safety Report 12482993 (Version 3)
Quarter: 2016Q4

REPORT INFORMATION
  Report Type: Spontaneous
  Country: US (occurrence: US)
  Receive Date: 20160620
  Receipt Date: 20161019
  Transmission Date: 20170207
  Serious: Yes (Hospitalization)
  Sender: FDA-Public Use
  Company Number: US-ALLERGAN-1656446US

PATIENT
  Age: 73 Year
  Sex: Female
  Weight: 69.84 kg

DRUGS (3)
  1. DALVANCE [Suspect]
     Active Substance: DALBAVANCIN
     Indication: STAPHYLOCOCCAL INFECTION
     Dosage: 1500 MG, SINGLE
     Route: 042
     Dates: start: 20160503, end: 20160503
  2. DALVANCE [Suspect]
     Active Substance: DALBAVANCIN
     Indication: ENTEROCOCCAL INFECTION
  3. DALVANCE [Suspect]
     Active Substance: DALBAVANCIN
     Indication: BACTERAEMIA

REACTIONS (2)
  - Flank pain [Recovered/Resolved]
  - Off label use [Unknown]

NARRATIVE: CASE EVENT DATE: 20160503
